FAERS Safety Report 22395839 (Version 1)
Quarter: 2023Q2

REPORT INFORMATION
  Report Type: Spontaneous
  Country: US (occurrence: US)
  Receive Date: 20230601
  Receipt Date: 20230601
  Transmission Date: 20230721
  Serious: No
  Sender: FDA-Public Use
  Company Number: US-APIL-2313345US

PATIENT
  Age: 53 Year
  Sex: Female
  Weight: 56.6 kg

DRUGS (1)
  1. BOTOX [Suspect]
     Active Substance: ONABOTULINUMTOXINA
     Indication: Product used for unknown indication
     Dosage: 36000 UNITS, SINGLE
     Route: 030
     Dates: start: 20230308, end: 20230308

REACTIONS (2)
  - Overdose [None]
  - Therapeutic response shortened [Unknown]

NARRATIVE: CASE EVENT DATE: 20230423
